FAERS Safety Report 24868156 (Version 1)
Quarter: 2025Q1

REPORT INFORMATION
  Report Type: Spontaneous
  Country: US (occurrence: None)
  Receive Date: 20250119
  Receipt Date: 20250119
  Transmission Date: 20250408
  Serious: Yes (Life-Threatening, Hospitalization)
  Sender: FDA-CTU
  Company Number: None

PATIENT
  Age: 29 Year
  Sex: Female
  Weight: 51.75 kg

DRUGS (24)
  1. AMPHETAMINE\DEXTROAMPHETAMINE [Suspect]
     Active Substance: AMPHETAMINE\DEXTROAMPHETAMINE
     Indication: Attention deficit hyperactivity disorder
     Dates: start: 20220201, end: 20220306
  2. Intrathecal pain pump-fentanyl [Concomitant]
  3. (medtronic) Spinal cord stimulator [Concomitant]
  4. ATIVAN [Concomitant]
     Active Substance: LORAZEPAM
  5. BUSPAR [Concomitant]
     Active Substance: BUSPIRONE HYDROCHLORIDE
  6. HYDROXYZINE [Concomitant]
     Active Substance: HYDROXYZINE HYDROCHLORIDE
  7. TIZANIDINE [Concomitant]
     Active Substance: TIZANIDINE
  8. TOPAMAX [Concomitant]
     Active Substance: TOPIRAMATE
  9. KEPPRA [Concomitant]
     Active Substance: LEVETIRACETAM
  10. LAMICTAL [Concomitant]
     Active Substance: LAMOTRIGINE
  11. NARATRIPTAN [Concomitant]
     Active Substance: NARATRIPTAN HYDROCHLORIDE
  12. UBRELVY [Concomitant]
     Active Substance: UBROGEPANT
  13. Botox (non cosmetic) [Concomitant]
  14. Botox (cosmetic) [Concomitant]
  15. TYLENOL [Concomitant]
     Active Substance: ACETAMINOPHEN
  16. LOPERAMIDE [Concomitant]
     Active Substance: LOPERAMIDE
  17. SIMETHICONE (DIMETHICONE) [Concomitant]
     Active Substance: DIMETHICONE
  18. TUMS [Concomitant]
     Active Substance: CALCIUM CARBONATE
  19. BENADRYL [Concomitant]
     Active Substance: DIPHENHYDRAMINE HYDROCHLORIDE
  20. ZOFRAN [Concomitant]
     Active Substance: ONDANSETRON HYDROCHLORIDE
  21. FAMOTIDINE [Concomitant]
     Active Substance: FAMOTIDINE
  22. PROTONIX [Concomitant]
     Active Substance: PANTOPRAZOLE SODIUM
  23. VITAMIN C [Concomitant]
     Active Substance: ASCORBIC ACID
  24. VITAMIN B6 [Concomitant]
     Active Substance: PYRIDOXINE HYDROCHLORIDE

REACTIONS (6)
  - Psychotic disorder [None]
  - Suicide attempt [None]
  - Electrocardiogram QT prolonged [None]
  - Overdose [None]
  - Underweight [None]
  - Decreased appetite [None]

NARRATIVE: CASE EVENT DATE: 20220306
